FAERS Safety Report 25514827 (Version 1)
Quarter: 2025Q3

REPORT INFORMATION
  Report Type: Spontaneous
  Country: US (occurrence: US)
  Receive Date: 20250703
  Receipt Date: 20250703
  Transmission Date: 20251020
  Serious: No
  Sender: RADIUS PHARM
  Company Number: US-RADIUS HEALTH INC.-2018US003321

PATIENT
  Sex: Female

DRUGS (2)
  1. TYMLOS [Suspect]
     Active Substance: ABALOPARATIDE
     Indication: Osteoporosis postmenopausal
     Route: 058
     Dates: start: 20211219
  2. TYMLOS [Suspect]
     Active Substance: ABALOPARATIDE
     Route: 058
     Dates: start: 2018

REACTIONS (7)
  - Nausea [Unknown]
  - Product dose omission issue [Recovering/Resolving]
  - Anxiety [Unknown]
  - Product quality issue [Unknown]
  - Product storage error [Unknown]
  - Heart rate increased [Unknown]
  - Pain [Unknown]
